FAERS Safety Report 4826341-1 (Version None)
Quarter: 2005Q4

REPORT INFORMATION
  Report Type: 
  Country: None (occurrence: None)
  Receive Date: 20051111
  Receipt Date: 20050818
  Transmission Date: 20060501
  Serious: Yes (Hospitalization)
  Sender: FDA-Public Use
  Company Number: US-ROCHE-415106

PATIENT
  Age: 92 Year
  Sex: Female
  Weight: 41.1 kg

DRUGS (10)
  1. BONIVA [Suspect]
     Indication: OSTEOPOROSIS
     Dosage: 150MG EVERY MONTH.
     Route: 048
     Dates: start: 20050616, end: 20050715
  2. VITAMINS NOS [Concomitant]
     Route: 048
  3. OS-CAL + D [Concomitant]
     Dosage: ^OS-CAL 600 PLUS D^.
     Route: 048
     Dates: start: 20050615
  4. MELATONIN [Concomitant]
     Indication: SOMNOLENCE
     Dosage: TAKEN AT BEDTIME.
     Route: 048
  5. TYLENOL (CAPLET) [Concomitant]
     Route: 048
  6. FOSAMAX [Concomitant]
     Dates: start: 19960615
  7. CELEBREX [Concomitant]
     Dosage: RECEIVED FOR A NUMBER OF YEARS.
  8. ADVIL [Concomitant]
     Dosage: RECEIVED FOR A NUMBER OF YEARS.
  9. ALEVE [Concomitant]
     Dosage: RECEIVED FOR A NUMBER OF YEARS.
  10. CALCIMAR [Concomitant]
     Dosage: RECEIVED FOR A NUMBER OF YEARS.

REACTIONS (5)
  - ANAEMIA [None]
  - FALL [None]
  - HUMERUS FRACTURE [None]
  - OEDEMA PERIPHERAL [None]
  - PNEUMONIA [None]
